FAERS Safety Report 7400824-2 (Version None)
Quarter: 2011Q2

REPORT INFORMATION
  Report Type: 
  Country: None (occurrence: None)
  Receive Date: 20110407
  Receipt Date: 20110309
  Transmission Date: 20111010
  Serious: Yes (Death)
  Sender: FDA-Public Use
  Company Number: CA-BAYER-2011-021636

PATIENT
  Age: 19 Year
  Sex: Female

DRUGS (1)
  1. YASMIN 21 [Suspect]
     Indication: CONTRACEPTION
     Dosage: UNK

REACTIONS (2)
  - INTRACRANIAL ANEURYSM [None]
  - HEADACHE [None]
